FAERS Safety Report 14688060 (Version 5)
Quarter: 2018Q2

REPORT INFORMATION
  Report Type: Spontaneous
  Country: US (occurrence: US)
  Receive Date: 20180328
  Receipt Date: 20180621
  Transmission Date: 20180711
  Serious: No
  Sender: FDA-Public Use
  Company Number: US-PFIZER INC-2018126801

PATIENT
  Age: 56 Year
  Sex: Female
  Weight: 90.61 kg

DRUGS (2)
  1. LETROZOLE. [Suspect]
     Active Substance: LETROZOLE
     Dosage: 2.5 MG, DAILY
     Route: 048
  2. IBRANCE [Suspect]
     Active Substance: PALBOCICLIB
     Indication: BREAST CANCER
     Dosage: 125 MG, CYCLIC (ONCE A DAY FOR 21 DAYS, 7 DAYS OFF)
     Route: 048
     Dates: start: 201703

REACTIONS (12)
  - Anaemia [Recovered/Resolved]
  - Weight decreased [Unknown]
  - Hormone level abnormal [Unknown]
  - Blood iron decreased [Unknown]
  - Visual impairment [Unknown]
  - Somnolence [Unknown]
  - Amnesia [Unknown]
  - Dysgeusia [Recovered/Resolved]
  - Hot flush [Unknown]
  - Hypersomnia [Not Recovered/Not Resolved]
  - Fatigue [Unknown]
  - Depression [Unknown]

NARRATIVE: CASE EVENT DATE: 201703
